FAERS Safety Report 6113919-0 (Version None)
Quarter: 2009Q1

REPORT INFORMATION
  Report Type: 
  Country: None (occurrence: None)
  Receive Date: 20090312
  Receipt Date: 20080919
  Transmission Date: 20090719
  Serious: No
  Sender: FDA-Public Use
  Company Number: US-ABBOTT-08P-163-0477239-00

PATIENT
  Sex: Female
  Weight: 20 kg

DRUGS (4)
  1. LUPRON DEPOT [Suspect]
     Indication: DRUG USE FOR UNKNOWN INDICATION
     Dates: start: 20080919, end: 20080919
  2. LUPRON DEPOT [Suspect]
     Indication: PRECOCIOUS PUBERTY
     Dates: start: 20080701, end: 20080801
  3. LUPRON DEPOT [Suspect]
     Route: 030
     Dates: start: 20071001, end: 20080701
  4. LUPRON DEPOT [Suspect]
     Dates: start: 20080901

REACTIONS (1)
  - UNDERDOSE [None]
